FAERS Safety Report 13030560 (Version 1)
Quarter: 2016Q4

REPORT INFORMATION
  Report Type: Spontaneous
  Country: US (occurrence: US)
  Receive Date: 20161215
  Receipt Date: 20161215
  Transmission Date: 20170207
  Serious: Yes (Other)
  Sender: FDA-Public Use
  Company Number: US-ENDO PHARMACEUTICALS INC.-2016-007274

PATIENT
  Age: 62 Year
  Sex: Male
  Weight: 79.45 kg

DRUGS (2)
  1. XIAFLEX [Suspect]
     Active Substance: COLLAGENASE CLOSTRIDIUM HISTOLYTICUM
     Route: 026
     Dates: start: 20151115
  2. XIAFLEX [Suspect]
     Active Substance: COLLAGENASE CLOSTRIDIUM HISTOLYTICUM
     Indication: DUPUYTREN^S CONTRACTURE
     Route: 026
     Dates: start: 20151215, end: 20151215

REACTIONS (4)
  - Peripheral swelling [Unknown]
  - Scar [Unknown]
  - Musculoskeletal stiffness [Not Recovered/Not Resolved]
  - Tenoplasty [Recovered/Resolved]

NARRATIVE: CASE EVENT DATE: 201601
